FAERS Safety Report 12449137 (Version 1)
Quarter: 2016Q2

REPORT INFORMATION
  Report Type: Report from Study
  Country: US (occurrence: US)
  Receive Date: 20160608
  Receipt Date: 20160608
  Transmission Date: 20160815
  Serious: No
  Sender: FDA-Public Use
  Company Number: GXBR2015US001502

PATIENT
  Age: 4 Year
  Sex: Female
  Weight: 13.15 kg

DRUGS (1)
  1. OMNITROPE [Suspect]
     Active Substance: SOMATROPIN
     Indication: CHRONIC KIDNEY DISEASE
     Dosage: 0.85 MG, SIX DAYS A WEEK
     Route: 065
     Dates: start: 201502

REACTIONS (4)
  - Failure to thrive [Not Recovered/Not Resolved]
  - Incorrect dose administered by device [Unknown]
  - Malaise [Not Recovered/Not Resolved]
  - Injection site extravasation [Not Recovered/Not Resolved]

NARRATIVE: CASE EVENT DATE: 20160427
